FAERS Safety Report 9050444 (Version 4)
Quarter: 2013Q2

REPORT INFORMATION
  Report Type: Spontaneous
  Country: US (occurrence: US)
  Receive Date: 20130205
  Receipt Date: 20130521
  Transmission Date: 20140414
  Serious: Yes (Hospitalization)
  Sender: FDA-Public Use
  Company Number: US-BAYER-2013-008772

PATIENT
  Age: 84 Year
  Sex: Female
  Weight: 61 kg

DRUGS (15)
  1. IBUPROFEN [Suspect]
     Indication: OSTEOARTHRITIS
     Dosage: THRICE DAILY
     Route: 048
     Dates: start: 20121026, end: 20121123
  2. IBUPROFEN [Suspect]
     Indication: RHEUMATOID ARTHRITIS
  3. NAPROXEN SODIUM ({=220 MG) [Suspect]
     Indication: OSTEOARTHRITIS
     Dosage: THRICE DAILY
     Route: 048
     Dates: start: 20121023, end: 20121123
  4. NAPROXEN SODIUM ({=220 MG) [Suspect]
     Indication: RHEUMATOID ARTHRITIS
  5. FUROSEMIDE [Suspect]
     Indication: OEDEMA
     Dosage: 40 MG TWICE DAILY
     Route: 048
     Dates: start: 20120813
  6. CELECOXIB [Suspect]
     Indication: OSTEOARTHRITIS
     Dosage: THRICE DAILY
     Route: 048
     Dates: start: 20121026, end: 20121123
  7. CELECOXIB [Suspect]
     Indication: RHEUMATOID ARTHRITIS
     Dosage: UNK
     Dates: start: 20121127, end: 20121201
  8. ALENDRONATE SODIUM [Concomitant]
     Indication: OSTEOPOROSIS
     Dosage: 70 MG WEEKLY
     Dates: start: 1997
  9. NEXIUM [Concomitant]
     Indication: PROPHYLAXIS
     Dosage: ONCE DAILY
     Dates: start: 20121026, end: 20121123
  10. LISINOPRIL W/HYDROCHLOROTHIAZIDE [Concomitant]
     Indication: HYPERTENSION
     Dosage: 12.5/ 20 MG ONCE DAILY
     Route: 048
     Dates: start: 2009, end: 20121212
  11. ZOLPIDEM [Concomitant]
     Indication: INSOMNIA
     Dosage: 10 MG ONCE DAILY
     Route: 048
     Dates: start: 2007
  12. CRESTOR [Concomitant]
     Indication: HYPERCHOLESTEROLAEMIA
     Dosage: 10 MG ONCE DAILY
     Route: 048
     Dates: start: 2011
  13. PREDNISONE [Concomitant]
     Indication: OSTEOARTHRITIS
     Dosage: 2.5 MG ONCE DAILY
     Route: 048
     Dates: start: 20121206
  14. VITAMIN D [Concomitant]
     Indication: OSTEOPOROSIS
     Dosage: 2000 UNITS ONCE DAILY
     Route: 048
     Dates: start: 1997
  15. CELEBREX [Concomitant]
     Indication: OSTEOARTHRITIS
     Dosage: 100 MG ONCE DAILY
     Route: 048
     Dates: start: 20121127

REACTIONS (16)
  - Hypovolaemia [Recovered/Resolved]
  - Hyponatraemia [Recovered/Resolved]
  - Hypokalaemia [Recovered/Resolved]
  - Presyncope [Recovered/Resolved]
  - Dizziness [Recovered/Resolved]
  - Laceration [None]
  - Fall [None]
  - Iron deficiency anaemia [None]
  - Gastrointestinal haemorrhage [None]
  - Syncope [None]
  - Anaemia [None]
  - Abdominal pain [None]
  - Haematochezia [None]
  - Hiatus hernia [None]
  - Oesophagitis [None]
  - Gastritis [None]
